FAERS Safety Report 14318529 (Version 1)
Quarter: 2017Q4

REPORT INFORMATION
  Report Type: Spontaneous
  Country: FR (occurrence: FR)
  Receive Date: 20171222
  Receipt Date: 20171222
  Transmission Date: 20180321
  Serious: Yes (Other)
  Sender: FDA-Public Use
  Company Number: FR-JNJFOC-20171224235

PATIENT

DRUGS (6)
  1. MYCOPHENOLIC ACID. [Suspect]
     Active Substance: MYCOPHENOLIC ACID
     Indication: NEUROSARCOIDOSIS
     Route: 065
  2. HYDROXYCHLOROQUINE [Suspect]
     Active Substance: HYDROXYCHLOROQUINE
     Indication: NEUROSARCOIDOSIS
     Route: 065
  3. METHOTREXATE. [Suspect]
     Active Substance: METHOTREXATE
     Indication: NEUROSARCOIDOSIS
     Route: 065
  4. INFLIXIMAB, RECOMBINANT [Suspect]
     Active Substance: INFLIXIMAB
     Indication: NEUROSARCOIDOSIS
     Dosage: 0,2,6 AND THEN EVERY 8 WEEKS
     Route: 042
  5. CYCLOPHOSPHAMIDE. [Suspect]
     Active Substance: CYCLOPHOSPHAMIDE
     Indication: NEUROSARCOIDOSIS
     Route: 042
  6. AZATHIOPRINE. [Suspect]
     Active Substance: AZATHIOPRINE
     Indication: NEUROSARCOIDOSIS
     Route: 065

REACTIONS (8)
  - Diabetes mellitus [Unknown]
  - Hypertension [Unknown]
  - Osteoporosis [Unknown]
  - Tuberculosis [Unknown]
  - Off label use [Unknown]
  - Product use in unapproved indication [Unknown]
  - Infection [Unknown]
  - Obesity [Unknown]
